FAERS Safety Report 8556930-2 (Version None)
Quarter: 2012Q3

REPORT INFORMATION
  Report Type: 
  Country: None (occurrence: None)
  Receive Date: 20120801
  Receipt Date: 20120717
  Transmission Date: 20120928
  Serious: Yes (Hospitalization, Disabling)
  Sender: FDA-Public Use
  Company Number: JP-ROCHE-1075081

PATIENT
  Sex: Male
  Weight: 79 kg

DRUGS (3)
  1. FLOMAX [Concomitant]
     Dates: start: 20120525, end: 20120528
  2. RANIBIZUMAB [Suspect]
     Indication: AGE-RELATED MACULAR DEGENERATION
     Route: 050
     Dates: start: 20120525
  3. VIGAMOX [Concomitant]
     Dates: start: 20120522, end: 20120528

REACTIONS (2)
  - ENDOPHTHALMITIS [None]
  - RETINAL HAEMORRHAGE [None]
